FAERS Safety Report 12368157 (Version 1)
Quarter: 2016Q2

REPORT INFORMATION
  Report Type: Spontaneous
  Country: US (occurrence: US)
  Receive Date: 20160513
  Receipt Date: 20160513
  Transmission Date: 20160815
  Serious: No
  Sender: FDA-Public Use
  Company Number: US-JNJFOC-20160400767

PATIENT
  Age: 82 Year
  Sex: Female
  Weight: 68.04 kg

DRUGS (2)
  1. MENS ROGAINE EXTRA STRENGTH [Suspect]
     Active Substance: MINOXIDIL
     Indication: PRODUCT USED FOR UNKNOWN INDICATION
     Dosage: ONE ML OR LESS
     Route: 061
  2. MENS ROGAINE EXTRA STRENGTH [Suspect]
     Active Substance: MINOXIDIL
     Route: 061

REACTIONS (9)
  - Off label use [Recovering/Resolving]
  - Pain of skin [Recovered/Resolved]
  - Expired product administered [Recovering/Resolving]
  - Medication residue present [Recovering/Resolving]
  - Headache [Recovering/Resolving]
  - Wrong patient received medication [Recovering/Resolving]
  - Product packaging issue [Unknown]
  - Hair texture abnormal [Recovering/Resolving]
  - Pruritus [Recovering/Resolving]
